FAERS Safety Report 25869548 (Version 1)
Quarter: 2025Q3

REPORT INFORMATION
  Report Type: Spontaneous
  Country: US (occurrence: None)
  Receive Date: 20250930
  Receipt Date: 20250930
  Transmission Date: 20251020
  Serious: Yes (Other)
  Sender: FDA-CTU
  Company Number: None

PATIENT
  Age: 68 Year
  Sex: Female
  Weight: 54 kg

DRUGS (5)
  1. QUETIAPINE [Suspect]
     Active Substance: QUETIAPINE
     Indication: Major depression
     Dosage: FREQUENCY : AT BEDTIME;?
     Route: 048
     Dates: end: 20250930
  2. QUETIAPINE [Suspect]
     Active Substance: QUETIAPINE
     Indication: Insomnia
  3. GABAPENTIN [Concomitant]
     Active Substance: GABAPENTIN
  4. cloaazepam [Concomitant]
  5. VOQUEZNA [Concomitant]
     Active Substance: VONOPRAZAN FUMARATE

REACTIONS (3)
  - Pityriasis rosea [None]
  - Viral infection [None]
  - Drug hypersensitivity [None]

NARRATIVE: CASE EVENT DATE: 20241001
